FAERS Safety Report 9726145 (Version 2)
Quarter: 2014Q1

REPORT INFORMATION
  Report Type: Spontaneous
  Country: JP (occurrence: JP)
  Receive Date: 20131203
  Receipt Date: 20140211
  Transmission Date: 20141002
  Serious: Yes (Life-Threatening)
  Sender: FDA-Public Use
  Company Number: JP-CUBIST PHARMACEUTICAL, INC.-2013CBST001243

PATIENT
  Sex: 0

DRUGS (3)
  1. CUBICIN [Suspect]
     Indication: PRODUCT USED FOR UNKNOWN INDICATION
     Dosage: 4 MG/KG OF THE SCHEDULED 335 MG, ONCE DAILY
     Route: 041
     Dates: start: 20131026, end: 20131026
  2. CUBICIN [Suspect]
     Dosage: 224 MG OF THE SCHEDULED 335 MG, ONCE DAILY
     Route: 041
     Dates: start: 20131026, end: 20131026
  3. ROCEPHIN [Concomitant]
     Indication: PRODUCT USED FOR UNKNOWN INDICATION
     Dosage: 2 G, BID
     Route: 041
     Dates: start: 20131004, end: 20131026

REACTIONS (1)
  - Anaphylactic shock [Recovered/Resolved]
